FAERS Safety Report 24120751 (Version 1)
Quarter: 2024Q3

REPORT INFORMATION
  Report Type: Spontaneous
  Country: CN (occurrence: CN)
  Receive Date: 20240722
  Receipt Date: 20240722
  Transmission Date: 20241017
  Serious: Yes (Hospitalization, Other)
  Sender: BAXTER
  Company Number: None

PATIENT
  Age: 55 Year
  Sex: Female
  Weight: 51 kg

DRUGS (3)
  1. CYCLOPHOSPHAMIDE [Suspect]
     Active Substance: CYCLOPHOSPHAMIDE
     Indication: Chemotherapy
     Dosage: 0.8 G, ONE TIME IN ONE DAY, DILUTED WITH 0.9% SODIUM CHLORIDE 30 ML, ANTI-TUMOR TREATMENT
     Route: 041
     Dates: start: 20240624, end: 20240624
  2. CYCLOPHOSPHAMIDE [Suspect]
     Active Substance: CYCLOPHOSPHAMIDE
     Indication: Neoplasm malignant
  3. SODIUM CHLORIDE [Suspect]
     Active Substance: SODIUM CHLORIDE
     Indication: Medication dilution
     Dosage: 0.9% 30 ML, ONE TIME IN ONE DAY, USED TO DILUTE CYCLOPHOSPHAMIDE 0.8 G, DOSAGE FORM: INJECTION
     Route: 041
     Dates: start: 20240624, end: 20240624

REACTIONS (1)
  - Myelosuppression [Unknown]

NARRATIVE: CASE EVENT DATE: 20240711
